FAERS Safety Report 5920520-8 (Version None)
Quarter: 2008Q4

REPORT INFORMATION
  Report Type: 
  Country: None (occurrence: None)
  Receive Date: 20081016
  Receipt Date: 20081008
  Transmission Date: 20090506
  Serious: Yes (Other)
  Sender: FDA-Public Use
  Company Number: B0541647A

PATIENT
  Age: 73 Year

DRUGS (1)
  1. SUPACEF [Suspect]
     Indication: DRUG USE FOR UNKNOWN INDICATION
     Dosage: 250MG PER DAY
     Route: 065

REACTIONS (4)
  - FLUSHING [None]
  - OCULAR HYPERAEMIA [None]
  - RESPIRATORY ARREST [None]
  - SNEEZING [None]
